FAERS Safety Report 11036866 (Version 1)
Quarter: 2015Q2

REPORT INFORMATION
  Report Type: Spontaneous
  Country: US (occurrence: None)
  Receive Date: 20150415
  Receipt Date: 20150415
  Transmission Date: 20150821
  Serious: Yes (Other)
  Sender: FDA-Public Use
  Company Number: None

PATIENT
  Age: 76 Year
  Sex: Female
  Weight: 79.38 kg

DRUGS (2)
  1. CELECOXIB 200MG [Suspect]
     Active Substance: CELECOXIB
     Dosage: 1 CAPSULE
     Route: 048
     Dates: start: 20150101, end: 20150414
  2. CELECOXIB 200MG [Suspect]
     Active Substance: CELECOXIB
     Indication: OSTEOARTHRITIS
     Dosage: 1 CAPSULE
     Route: 048
     Dates: start: 20150101, end: 20150414

REACTIONS (4)
  - Drug ineffective [None]
  - Product substitution issue [None]
  - Arthralgia [None]
  - Condition aggravated [None]
